FAERS Safety Report 4351966-X (Version None)
Quarter: 2004Q2

REPORT INFORMATION
  Report Type: 
  Country: None (occurrence: None)
  Receive Date: 20040429
  Receipt Date: 20040128
  Transmission Date: 20050107
  Serious: No
  Sender: FDA-Public Use
  Company Number: 2004-112894-NL

PATIENT
  Age: 25 Year
  Sex: Female
  Weight: 62.27 kg

DRUGS (1)
  1. NUVARING [Suspect]
     Dosage: DF DAILY VAGINAL
     Route: 067
     Dates: start: 20031125

REACTIONS (1)
  - URTICARIA [None]
